FAERS Safety Report 9522012 (Version 1)
Quarter: 2013Q3

REPORT INFORMATION
  Report Type: Spontaneous
  Country: DE (occurrence: None)
  Receive Date: 20130911
  Receipt Date: 20130911
  Transmission Date: 20140515
  Serious: Yes (Congenital Anomaly)
  Sender: FDA-Public Use
  Company Number: 2013PL000142

PATIENT
  Sex: 0

DRUGS (7)
  1. ALLOPURINOL [Suspect]
     Indication: GLOMERULONEPHRITIS
     Route: 064
  2. AMLODIPINE [Concomitant]
  3. VALSARTAN [Concomitant]
  4. METOPROLOL [Concomitant]
  5. HYDROCHLOROTHIAZIDE [Concomitant]
  6. ALPHA-METHYLDOPA [Concomitant]
  7. DESLORATADINE [Concomitant]

REACTIONS (5)
  - Patent ductus arteriosus [None]
  - Congenital umbilical hernia [None]
  - Eyelid ptosis congenital [None]
  - Maternal drugs affecting foetus [None]
  - Premature baby [None]
